FAERS Safety Report 7152828-5 (Version None)
Quarter: 2010Q4

REPORT INFORMATION
  Report Type: 
  Country: None (occurrence: None)
  Receive Date: 20101213
  Receipt Date: 20101203
  Transmission Date: 20110411
  Serious: Yes (Hospitalization, Other)
  Sender: FDA-Public Use
  Company Number: PHHY2010CA22487

PATIENT
  Sex: Female

DRUGS (3)
  1. EXJADE [Suspect]
     Indication: SICKLE CELL ANAEMIA
     Dosage: 1500 MG, QD
     Route: 048
  2. CALCIUM [Concomitant]
  3. FOLIC ACID [Concomitant]

REACTIONS (9)
  - DECREASED APPETITE [None]
  - HAEMOGLOBINOPATHY [None]
  - IMPAIRED HEALING [None]
  - POOR PERIPHERAL CIRCULATION [None]
  - RASH [None]
  - SKIN LESION [None]
  - SKIN ULCER [None]
  - SURGERY [None]
  - ULCER [None]
